FAERS Safety Report 7983579-2 (Version None)
Quarter: 2011Q4

REPORT INFORMATION
  Report Type: 
  Country: None (occurrence: None)
  Receive Date: 20111215
  Receipt Date: 20111207
  Transmission Date: 20120403
  Serious: Yes (Disabling, Other)
  Sender: FDA-Public Use
  Company Number: PHHY2010US29526

PATIENT
  Sex: Female

DRUGS (4)
  1. ASCORBIC ACID [Concomitant]
     Dosage: 2 DF, QD
  2. EXTAVIA [Suspect]
     Indication: MULTIPLE SCLEROSIS
     Dosage: 0.25 MG, QOD
     Route: 058
     Dates: start: 20100315
  3. MULTI-VITAMINS [Concomitant]
     Dosage: 1 DF, QD
  4. IBUPROFEN [Concomitant]

REACTIONS (22)
  - SKIN LESION [None]
  - ORGASM ABNORMAL [None]
  - INJECTION SITE VESICLES [None]
  - ALOPECIA [None]
  - INJECTION SITE SCAR [None]
  - FATIGUE [None]
  - VISUAL IMPAIRMENT [None]
  - AGITATION [None]
  - SKIN BURNING SENSATION [None]
  - MEMORY IMPAIRMENT [None]
  - DECREASED APPETITE [None]
  - STAPHYLOCOCCAL INFECTION [None]
  - PRURITUS [None]
  - WEIGHT DECREASED [None]
  - INJECTION SITE HAEMATOMA [None]
  - DIZZINESS [None]
  - ERYTHEMA [None]
  - ROAD TRAFFIC ACCIDENT [None]
  - ABASIA [None]
  - FEELING ABNORMAL [None]
  - IRRITABILITY [None]
  - BLISTER [None]
